FAERS Safety Report 9729722 (Version 1)
Quarter: 2013Q4

REPORT INFORMATION
  Report Type: Spontaneous
  Country: US (occurrence: US)
  Receive Date: 20131204
  Receipt Date: 20131204
  Transmission Date: 20140711
  Serious: No
  Sender: FDA-Public Use
  Company Number: US-GILEAD-2009-0021877

PATIENT
  Sex: Female
  Weight: 77.11 kg

DRUGS (9)
  1. LETAIRIS [Suspect]
     Indication: PULMONARY ARTERIAL HYPERTENSION
     Route: 048
     Dates: start: 20090319
  2. TRACLEER [Concomitant]
     Indication: PULMONARY ARTERIAL HYPERTENSION
  3. AMLODIPINE BESYLATE [Concomitant]
  4. HYZAAR [Concomitant]
  5. ASPIRIN [Concomitant]
  6. LASIX [Concomitant]
  7. PROTONIX [Concomitant]
  8. LEVOXYL [Concomitant]
  9. TOPAMAX [Concomitant]

REACTIONS (6)
  - Oedema [Unknown]
  - Nasal congestion [Unknown]
  - Flushing [Unknown]
  - Palpitations [Unknown]
  - Abdominal pain [Unknown]
  - Constipation [Unknown]
